FAERS Safety Report 15429360 (Version 18)
Quarter: 2020Q2

REPORT INFORMATION
  Report Type: Report from Study
  Country: SG (occurrence: SG)
  Receive Date: 20180926
  Receipt Date: 20200411
  Transmission Date: 20200713
  Serious: Yes (Hospitalization)
  Sender: FDA-Public Use
  Company Number: PHHY2018SG100785

PATIENT
  Age: 74 Year
  Sex: Female
  Weight: 52.6 kg

DRUGS (19)
  1. OMEPRAZOLE. [Concomitant]
     Active Substance: OMEPRAZOLE
     Indication: EPIGASTRIC DISCOMFORT
     Dosage: 40 OT, UNK
     Route: 048
     Dates: start: 20180512
  2. FERBEAPLEX [Concomitant]
     Indication: MINERAL SUPPLEMENTATION
     Dosage: 2 OT, UNK
     Route: 048
     Dates: start: 20180905
  3. SODIUM CHLORIDE. [Concomitant]
     Active Substance: SODIUM CHLORIDE
     Indication: PRODUCT USED FOR UNKNOWN INDICATION
     Dosage: 1 OT, UNK
     Route: 042
     Dates: start: 20180904, end: 20180905
  4. MAGNESIUM [Concomitant]
     Active Substance: MAGNESIUM
     Indication: PROPHYLAXIS
     Dosage: 5 OT, UNK
     Route: 042
     Dates: start: 20180904, end: 20180904
  5. ORAL AID [Concomitant]
     Indication: MOUTH ULCERATION
     Dosage: 1 OT, UNK
     Route: 061
     Dates: start: 20180524, end: 20180823
  6. SANGOBION [Concomitant]
     Indication: MINERAL SUPPLEMENTATION
     Dosage: 2 OT, UNK
     Route: 048
     Dates: start: 20180904, end: 20180905
  7. VOTRIENT [Suspect]
     Active Substance: PAZOPANIB HYDROCHLORIDE
     Dosage: 400 MG
     Route: 048
     Dates: start: 20180602, end: 20180613
  8. NYSTATIN. [Concomitant]
     Active Substance: NYSTATIN
     Indication: MOUTH ULCERATION
     Dosage: 5 OT, UNK
     Route: 048
     Dates: start: 20180904, end: 20180912
  9. METFORMIN [Concomitant]
     Active Substance: METFORMIN HYDROCHLORIDE
     Indication: DIABETES MELLITUS
     Dosage: 500 OT, UNK
     Route: 048
     Dates: start: 20180512
  10. AMLODIPINE [Concomitant]
     Active Substance: AMLODIPINE BESYLATE
     Indication: HYPERTENSION
     Dosage: 10 OT, UNK
     Route: 048
  11. FERROUS FUMARATE [Concomitant]
     Active Substance: FERROUS FUMARATE
     Indication: MINERAL SUPPLEMENTATION
     Dosage: 400 OT, UNK
     Route: 048
     Dates: start: 20180512, end: 20180823
  12. PARACETAMOL [Concomitant]
     Active Substance: ACETAMINOPHEN
     Indication: PROPHYLAXIS
     Dosage: UNK
     Route: 048
     Dates: start: 20180512, end: 20180614
  13. PARACETAMOL [Concomitant]
     Active Substance: ACETAMINOPHEN
     Dosage: 1 OT, UNK
     Route: 048
     Dates: start: 20180904
  14. LOPERAMIDE [Concomitant]
     Active Substance: LOPERAMIDE
     Indication: DIARRHOEA
     Dosage: 4 OT, UNK
     Route: 048
     Dates: start: 20180524, end: 20180614
  15. METOCLOPRAMIDE HCL [Concomitant]
     Active Substance: METOCLOPRAMIDE HYDROCHLORIDE
     Indication: PROPHYLAXIS OF NAUSEA AND VOMITING
     Dosage: 10 OT, UNK
     Route: 048
     Dates: start: 20180905
  16. VOTRIENT [Suspect]
     Active Substance: PAZOPANIB HYDROCHLORIDE
     Indication: RENAL CELL CARCINOMA
     Dosage: 400 MG, QD
     Route: 048
     Dates: start: 20180525, end: 20180601
  17. VOTRIENT [Suspect]
     Active Substance: PAZOPANIB HYDROCHLORIDE
     Dosage: 400 MG
     Route: 048
     Dates: start: 20180614, end: 20180912
  18. VALSARTAN. [Concomitant]
     Active Substance: VALSARTAN
     Indication: HYPERTENSION
     Dosage: 80 OT, UNK
     Route: 048
     Dates: start: 20180512, end: 20180711
  19. WHITE SOFT PARAFFIN [Concomitant]
     Active Substance: PARAFFIN
     Indication: DRY SKIN
     Dosage: 1 OT, UNK
     Route: 061
     Dates: start: 20180512, end: 20180711

REACTIONS (14)
  - Gastritis [Recovered/Resolved]
  - Leukocytosis [Unknown]
  - Mean platelet volume decreased [Unknown]
  - Neutrophil count increased [Unknown]
  - Anaemia [Recovered/Resolved]
  - Anaemia [Recovered/Resolved]
  - Oedema peripheral [Not Recovered/Not Resolved]
  - Eosinophil count decreased [Unknown]
  - Monocyte count increased [Unknown]
  - Platelet count increased [Unknown]
  - Dysgeusia [Not Recovered/Not Resolved]
  - Lymphocyte count decreased [Unknown]
  - Insomnia [Not Recovered/Not Resolved]
  - Rash [Not Recovered/Not Resolved]

NARRATIVE: CASE EVENT DATE: 20180601
